FAERS Safety Report 19930285 (Version 1)
Quarter: 2021Q4

REPORT INFORMATION
  Report Type: Spontaneous
  Country: CN (occurrence: CN)
  Receive Date: 20211008
  Receipt Date: 20211008
  Transmission Date: 20220303
  Serious: Yes (Hospitalization)
  Sender: FDA-Public Use
  Company Number: CN-JNJFOC-20211004429

PATIENT
  Age: 12 Day
  Sex: Male
  Weight: 1.48 kg

DRUGS (1)
  1. CHILDRENS MOTRIN [Suspect]
     Active Substance: IBUPROFEN
     Indication: Patent ductus arteriosus
     Dosage: 0.75ML PO Q24H
     Route: 048
     Dates: start: 20210824, end: 20210826

REACTIONS (1)
  - Urine output decreased [Recovering/Resolving]

NARRATIVE: CASE EVENT DATE: 20210824
